FAERS Safety Report 10516662 (Version 2)
Quarter: 2014Q4

REPORT INFORMATION
  Report Type: Report from Study
  Country: US (occurrence: US)
  Receive Date: 20141014
  Receipt Date: 20141014
  Transmission Date: 20150528
  Serious: Yes (Hospitalization)
  Sender: FDA-Public Use
  Company Number: US-ABBVIE-14K-163-1288153-00

PATIENT
  Sex: Female

DRUGS (3)
  1. HUMIRA [Suspect]
     Active Substance: ADALIMUMAB
     Indication: CROHN^S DISEASE
     Route: 058
     Dates: start: 20140707, end: 20140922
  2. HUMIRA [Suspect]
     Active Substance: ADALIMUMAB
     Dosage: RELOADING DOSE
     Route: 058
     Dates: start: 201409, end: 201409
  3. HUMIRA [Suspect]
     Active Substance: ADALIMUMAB
     Dosage: ONE WEEK AFTER 160 MG DOSE
     Route: 058
     Dates: start: 201409

REACTIONS (9)
  - Tachycardia [Not Recovered/Not Resolved]
  - Haematochezia [Recovering/Resolving]
  - Pruritus [Not Recovered/Not Resolved]
  - Crohn^s disease [Recovered/Resolved]
  - Intestinal fistula [Unknown]
  - Rhinorrhoea [Not Recovered/Not Resolved]
  - Gastrointestinal infection [Unknown]
  - Drug level decreased [Unknown]
  - Pyrexia [Unknown]

NARRATIVE: CASE EVENT DATE: 2014
